FAERS Safety Report 4873627-0 (Version None)
Quarter: 2005Q4

REPORT INFORMATION
  Report Type: 
  Country: None (occurrence: None)
  Receive Date: 20051201
  Receipt Date: 20050831
  Transmission Date: 20060501
  Serious: No
  Sender: FDA-Public Use
  Company Number: 2005PV001505

PATIENT
  Age: 58 Year
  Sex: Female
  Weight: 73.0291 kg

DRUGS (2)
  1. BYETTA [Suspect]
     Indication: DIABETES MELLITUS NON-INSULIN-DEPENDENT
     Dosage: 5 MCG; 10 MCG : BID; SC
     Route: 058
     Dates: start: 20050726, end: 20050828
  2. BYETTA [Suspect]
     Indication: DIABETES MELLITUS NON-INSULIN-DEPENDENT
     Dosage: 5 MCG; 10 MCG : BID; SC
     Route: 058
     Dates: start: 20050829

REACTIONS (1)
  - WEIGHT DECREASED [None]
